FAERS Safety Report 7247791-2 (Version None)
Quarter: 2011Q1

REPORT INFORMATION
  Report Type: 
  Country: None (occurrence: None)
  Receive Date: 20110127
  Receipt Date: 20110114
  Transmission Date: 20110831
  Serious: Yes (Hospitalization, Other)
  Sender: FDA-Public Use
  Company Number: US-ELI_LILLY_AND_COMPANY-US201101003670

PATIENT
  Sex: Female
  Weight: 97.506 kg

DRUGS (3)
  1. CLOZARIL [Concomitant]
     Dosage: UNK, UNKNOWN
     Route: 065
  2. NAVANE [Concomitant]
     Dosage: UNK, UNKNOWN
     Route: 065
  3. ZYPREXA [Suspect]
     Dosage: 75 MG, 2/D
     Dates: start: 20000101, end: 20070101

REACTIONS (8)
  - HYPERTENSION [None]
  - WEIGHT INCREASED [None]
  - OVERDOSE [None]
  - HALLUCINATION, AUDITORY [None]
  - OBESITY [None]
  - MUMPS [None]
  - DIABETES MELLITUS [None]
  - HALLUCINATION, VISUAL [None]
